FAERS Safety Report 12828363 (Version 1)
Quarter: 2016Q4

REPORT INFORMATION
  Report Type: Spontaneous
  Country: CN (occurrence: CN)
  Receive Date: 20161007
  Receipt Date: 20161007
  Transmission Date: 20170207
  Serious: Yes (Other)
  Sender: FDA-Public Use
  Company Number: CN-CELGENEUS-CHN-2016095623

PATIENT

DRUGS (1)
  1. ABRAXANE [Suspect]
     Active Substance: PACLITAXEL
     Indication: NEOPLASM MALIGNANT
     Route: 011

REACTIONS (16)
  - Thrombocytopenia [Unknown]
  - Neutropenia [Unknown]
  - Fatigue [Unknown]
  - Arthralgia [Unknown]
  - Liver injury [Unknown]
  - White blood cell count decreased [Unknown]
  - Rash [Unknown]
  - Nausea [Unknown]
  - Decreased appetite [Unknown]
  - Myalgia [Unknown]
  - Diarrhoea [Unknown]
  - Neurotoxicity [Unknown]
  - Alopecia [Unknown]
  - Mucosal inflammation [Unknown]
  - Anaemia [Unknown]
  - Vomiting [Unknown]
